FAERS Safety Report 9876819 (Version 2)
Quarter: 2014Q1

REPORT INFORMATION
  Report Type: Spontaneous
  Country: US (occurrence: US)
  Receive Date: 20140206
  Receipt Date: 20140212
  Transmission Date: 20141002
  Serious: Yes (Hospitalization)
  Sender: FDA-Public Use
  Company Number: US-AMGEN-USASP2014008026

PATIENT
  Age: 40 Year
  Sex: Female

DRUGS (2)
  1. ENBREL [Suspect]
     Indication: RHEUMATOID ARTHRITIS
     Dosage: 50 MG, QWK
     Route: 065
     Dates: start: 200905
  2. METHOTREXATE [Concomitant]
     Dosage: UNK

REACTIONS (8)
  - Uterine cancer [Recovered/Resolved]
  - Incisional hernia [Recovered/Resolved]
  - Impaired healing [Recovered/Resolved]
  - Staphylococcal infection [Recovered/Resolved]
  - Musculoskeletal stiffness [Not Recovered/Not Resolved]
  - Chondropathy [Not Recovered/Not Resolved]
  - Incision site abscess [Recovered/Resolved]
  - Injection site pain [Not Recovered/Not Resolved]
